FAERS Safety Report 8769729 (Version 1)
Quarter: 2012Q4

REPORT INFORMATION
  Report Type: 
  Country: US (occurrence: US)
  Receive Date: 20120905
  Receipt Date: 20120905
  Transmission Date: 20130627
  Serious: Yes (Other)
  Sender: FDA-Public Use
  Company Number: US-JNJFOC-20120814158

PATIENT
  Sex: Male

DRUGS (1)
  1. CALADRYL CLEAR LOTION [Suspect]
     Indication: HEAT RASH
     Route: 061
     Dates: start: 20120826

REACTIONS (3)
  - Disorientation [Not Recovered/Not Resolved]
  - Confusional state [Not Recovered/Not Resolved]
  - Off label use [Unknown]
